FAERS Safety Report 7159157-4 (Version None)
Quarter: 2010Q4

REPORT INFORMATION
  Report Type: 
  Country: None (occurrence: None)
  Receive Date: 20101214
  Receipt Date: 20101203
  Transmission Date: 20110411
  Serious: Yes (Hospitalization, Other)
  Sender: FDA-Public Use
  Company Number: US-ELI_LILLY_AND_COMPANY-US201010007135

PATIENT
  Sex: Female
  Weight: 48.073 kg

DRUGS (3)
  1. EVISTA [Suspect]
     Indication: OSTEOPOROSIS
     Dosage: 60 MG, DAILY (1/D)
  2. CARDIZEM [Concomitant]
     Indication: HYPERTENSION
     Dosage: 180 MG, UNK
  3. ZOCOR [Concomitant]

REACTIONS (3)
  - DIZZINESS [None]
  - ISCHAEMIC STROKE [None]
  - PARALYSIS [None]
